FAERS Safety Report 10461525 (Version 1)
Quarter: 2014Q3

REPORT INFORMATION
  Report Type: Spontaneous
  Country: US (occurrence: None)
  Receive Date: 20140916
  Receipt Date: 20140916
  Transmission Date: 20150326
  Serious: Yes (Hospitalization)
  Sender: FDA-Public Use
  Company Number: QSC-2014-0602

PATIENT
  Age: 60 Year
  Sex: Male
  Weight: 88.4 kg

DRUGS (8)
  1. H.P. ACTHAR [Suspect]
     Active Substance: CORTICOTROPIN
     Indication: MYOSITIS
     Dosage: 80 UNITS
     Dates: start: 2013
  2. AZATHIOPRINE. [Concomitant]
     Active Substance: AZATHIOPRINE
  3. AMLODIPINE [Concomitant]
     Active Substance: AMLODIPINE BESYLATE
  4. FUROSEMIDE. [Concomitant]
     Active Substance: FUROSEMIDE
  5. CARVEDILOL. [Concomitant]
     Active Substance: CARVEDILOL
  6. MINOXIDIL. [Concomitant]
     Active Substance: MINOXIDIL
  7. CLONIDINE. [Concomitant]
     Active Substance: CLONIDINE
  8. PREDNISONE (PREDNISONE) [Suspect]
     Active Substance: PREDNISONE
     Indication: MYOSITIS

REACTIONS (5)
  - Blood creatinine increased [None]
  - Infection [None]
  - Renal failure [None]
  - Medical device complication [None]
  - Thrombosis in device [None]

NARRATIVE: CASE EVENT DATE: 201402
